FAERS Safety Report 4688098-7 (Version None)
Quarter: 2005Q2

REPORT INFORMATION
  Report Type: 
  Country: None (occurrence: None)
  Receive Date: 20050609
  Receipt Date: 20050525
  Transmission Date: 20051028
  Serious: Yes (Death, Other)
  Sender: FDA-Public Use
  Company Number: 2005-0008370

PATIENT
  Sex: Male

DRUGS (4)
  1. VIREAD [Suspect]
     Indication: HIV INFECTION
     Dosage: 300 MG, ORAL
     Route: 048
  2. ABACAVIR (ABACAVIR) [Concomitant]
  3. ATAZANAVIR SULFATE [Concomitant]
  4. RITONAVIR (RITONAVIR) [Concomitant]

REACTIONS (1)
  - HEPATIC FAILURE [None]
